FAERS Safety Report 16261266 (Version 4)
Quarter: 2019Q3

REPORT INFORMATION
  Report Type: Report from Study
  Country: US (occurrence: US)
  Receive Date: 20190501
  Receipt Date: 20190708
  Transmission Date: 20191004
  Serious: Yes (Hospitalization, Other)
  Sender: FDA-Public Use
  Company Number: US-CLOVIS ONCOLOGY-CLO-2019-000773

PATIENT
  Sex: Female

DRUGS (1)
  1. RUBRACA [Suspect]
     Active Substance: RUCAPARIB CAMSYLATE
     Indication: OVARIAN CANCER
     Dosage: 600 MG, BID
     Route: 048
     Dates: start: 20190409, end: 201904

REACTIONS (9)
  - Intestinal obstruction [Unknown]
  - Cardiac disorder [Unknown]
  - Vomiting [Unknown]
  - Anaemia [Unknown]
  - Dehydration [Unknown]
  - Abdominal pain upper [Unknown]
  - Renal function test abnormal [Unknown]
  - Small intestinal obstruction [Unknown]
  - Drug intolerance [Unknown]

NARRATIVE: CASE EVENT DATE: 2019
